FAERS Safety Report 6136319-6 (Version None)
Quarter: 2009Q1

REPORT INFORMATION
  Report Type: 
  Country: None (occurrence: None)
  Receive Date: 20090325
  Receipt Date: 20090313
  Transmission Date: 20090719
  Serious: Yes (Other)
  Sender: FDA-Public Use
  Company Number: 2009SP005644

PATIENT
  Sex: Male

DRUGS (2)
  1. ASMANEX TWISTHALER [Suspect]
     Indication: DRUG USE FOR UNKNOWN INDICATION
     Dosage: ; PO
     Route: 048
  2. MIRTAZAPINE [Suspect]
     Indication: DRUG USE FOR UNKNOWN INDICATION

REACTIONS (2)
  - BLINDNESS UNILATERAL [None]
  - RASH ERYTHEMATOUS [None]
